FAERS Safety Report 8386627-3 (Version None)
Quarter: 2012Q2

REPORT INFORMATION
  Report Type: 
  Country: None (occurrence: None)
  Receive Date: 20120525
  Receipt Date: 20120516
  Transmission Date: 20120825
  Serious: Yes (Hospitalization)
  Sender: FDA-Public Use
  Company Number: US-ABBOTT-12P-163-0920982-00

PATIENT
  Sex: Female
  Weight: 102.15 kg

DRUGS (11)
  1. METHOTREXATE [Concomitant]
     Indication: RHEUMATOID ARTHRITIS
  2. OMEPRAZOLE [Concomitant]
     Indication: GASTROOESOPHAGEAL REFLUX DISEASE
  3. CARVEDILOL [Concomitant]
     Indication: HYPERTENSION
  4. HYDROCODONE BITARTRATE [Concomitant]
     Indication: RHEUMATOID ARTHRITIS
     Dosage: 325/5MG
  5. HUMIRA [Suspect]
     Indication: RHEUMATOID ARTHRITIS
     Route: 058
     Dates: start: 20090101
  6. LEVOTHYROXINE SODIUM [Concomitant]
     Indication: HYPOTHYROIDISM
  7. HUMULIN R [Concomitant]
     Indication: DIABETES MELLITUS
     Route: 058
  8. CRESTOR [Concomitant]
     Indication: BLOOD CHOLESTEROL INCREASED
  9. PREDNISONE [Concomitant]
     Indication: RHEUMATOID ARTHRITIS
  10. FOLIC ACID [Concomitant]
     Indication: VITAMIN SUPPLEMENTATION
  11. LISINOPRIL [Concomitant]
     Indication: HYPERTENSION

REACTIONS (9)
  - VOMITING [None]
  - DIARRHOEA [None]
  - BLOOD POTASSIUM DECREASED [None]
  - ANAEMIA [None]
  - VIRAL INFECTION [None]
  - SLEEP APNOEA SYNDROME [None]
  - AORTIC THROMBOSIS [None]
  - NAUSEA [None]
  - LABORATORY TEST ABNORMAL [None]
